FAERS Safety Report 13604609 (Version 1)
Quarter: 2017Q2

REPORT INFORMATION
  Report Type: Spontaneous
  Country: US (occurrence: US)
  Receive Date: 20170601
  Receipt Date: 20170601
  Transmission Date: 20170830
  Serious: No
  Sender: FDA-Public Use
  Company Number: None

PATIENT
  Age: 40 Year
  Sex: Female

DRUGS (1)
  1. SENSIPAR [Suspect]
     Active Substance: CINACALCET HYDROCHLORIDE
     Indication: PARATHYROID DISORDER
     Route: 048
     Dates: start: 20170301

REACTIONS (2)
  - Decreased appetite [None]
  - Dyspepsia [None]

NARRATIVE: CASE EVENT DATE: 20170315
